FAERS Safety Report 22725268 (Version 2)
Quarter: 2025Q4

REPORT INFORMATION
  Report Type: Report from Study
  Country: GB (occurrence: GB)
  Receive Date: 20230719
  Receipt Date: 20251020
  Transmission Date: 20260118
  Serious: Yes (Hospitalization)
  Sender: MYLAN
  Company Number: GB-JNJFOC-20201149690

PATIENT
  Age: 19 Year
  Sex: Female

DRUGS (7)
  1. BUDESONIDE [Suspect]
     Active Substance: BUDESONIDE
     Indication: Crohn^s disease
     Dosage: START DATE: 11-NOV-2017
  2. AZATHIOPRINE [Suspect]
     Active Substance: AZATHIOPRINE
     Indication: Crohn^s disease
     Dosage: START DATE: 11-NOV-2017
  3. AZATHIOPRINE [Suspect]
     Active Substance: AZATHIOPRINE
     Dosage: UNK
  4. REMICADE [Suspect]
     Active Substance: INFLIXIMAB
     Indication: Crohn^s disease
     Dosage: UNK
     Dates: start: 20160921, end: 20171211
  5. REMICADE [Suspect]
     Active Substance: INFLIXIMAB
     Dosage: START DATE: 11-JAN-2018
  6. REMICADE [Suspect]
     Active Substance: INFLIXIMAB
     Dosage: START DATE: 11-SEP-2018
  7. ADALIMUMAB [Suspect]
     Active Substance: ADALIMUMAB
     Indication: Crohn^s disease
     Dosage: START DATE: 22-MAY-2019

REACTIONS (5)
  - Tonsillitis [Recovered/Resolved]
  - Limb injury [Recovering/Resolving]
  - Crohn^s disease [Recovered/Resolved]
  - Drug specific antibody present [Recovered/Resolved]
  - Drug ineffective [Recovered/Resolved]

NARRATIVE: CASE EVENT DATE: 20160921
